FAERS Safety Report 17462486 (Version 1)
Quarter: 2020Q1

REPORT INFORMATION
  Report Type: Spontaneous
  Country: US (occurrence: US)
  Receive Date: 20200226
  Receipt Date: 20200226
  Transmission Date: 20200409
  Serious: Yes (Hospitalization)
  Sender: FDA-Public Use
  Company Number: None

PATIENT
  Sex: Male

DRUGS (9)
  1. OXYCODONE [Concomitant]
     Active Substance: OXYCODONE
  2. POTASSIUM [Concomitant]
     Active Substance: POTASSIUM
  3. CAPECITABINE. [Suspect]
     Active Substance: CAPECITABINE
     Indication: PANCREATIC CARCINOMA
     Dosage: ?          OTHER FREQUENCY:IN THE AM;?
     Route: 048
     Dates: start: 20200201
  4. CAPECITABINE. [Suspect]
     Active Substance: CAPECITABINE
     Indication: PANCREATIC CARCINOMA
     Dosage: ?          OTHER FREQUENCY:IN THE PM;?
     Route: 048
     Dates: start: 20200201
  5. ASPIRIN. [Concomitant]
     Active Substance: ASPIRIN
  6. CLINDAMYCIN. [Concomitant]
     Active Substance: CLINDAMYCIN
  7. METOCLOPRAM [Concomitant]
     Active Substance: METOCLOPRAMIDE
  8. ZOLPIDEM [Concomitant]
     Active Substance: ZOLPIDEM TARTRATE
  9. OMEPRAZOLE. [Concomitant]
     Active Substance: OMEPRAZOLE

REACTIONS (1)
  - Therapy cessation [None]
